FAERS Safety Report 22233083 (Version 1)
Quarter: 2023Q2

REPORT INFORMATION
  Report Type: Spontaneous
  Country: US (occurrence: None)
  Receive Date: 20230420
  Receipt Date: 20230420
  Transmission Date: 20230722
  Serious: No
  Sender: FDA-Public Use
  Company Number: US-ROCHE-3090064

PATIENT
  Sex: Female

DRUGS (2)
  1. ESBRIET [Suspect]
     Active Substance: PIRFENIDONE
     Indication: Idiopathic pulmonary fibrosis
     Dosage: 1 CAPSULE 3 TIMES A DAY FOR 7 DAYS, THEN 2 CAPSULES 3 TIMES A DAY FOR 7 DAYS, THEN 3 CAPSULES 3 TIME
     Route: 048
     Dates: start: 20220331
  2. PRILOSEC [Concomitant]
     Active Substance: OMEPRAZOLE MAGNESIUM
     Indication: Gastrooesophageal reflux disease

REACTIONS (7)
  - Nausea [Unknown]
  - Vomiting [Unknown]
  - Diarrhoea [Unknown]
  - Abdominal pain upper [Unknown]
  - Illness [Unknown]
  - Oesophageal pain [Unknown]
  - Intentional product misuse [Unknown]
